FAERS Safety Report 25932174 (Version 3)
Quarter: 2025Q4

REPORT INFORMATION
  Report Type: Spontaneous
  Country: US (occurrence: US)
  Receive Date: 20251016
  Receipt Date: 20251024
  Transmission Date: 20260117
  Serious: Yes (Hospitalization)
  Sender: SERVIER
  Company Number: US-SERVIER-S25014661

PATIENT

DRUGS (5)
  1. ASPARLAS [Suspect]
     Active Substance: CALASPARGASE PEGOL-MKNL
     Indication: B-cell type acute leukaemia
     Dosage: 2800 U, OTHER
     Route: 042
     Dates: start: 20250731, end: 20250731
  2. ASPARLAS [Suspect]
     Active Substance: CALASPARGASE PEGOL-MKNL
     Dosage: 2800 U, OTHER
     Route: 042
     Dates: start: 20250918, end: 20250918
  3. MERCAPTOPURINE [Concomitant]
     Active Substance: MERCAPTOPURINE
     Indication: B-cell type acute leukaemia
     Dosage: 475 MG, EVERY 1 WEEK
     Route: 048
     Dates: start: 20250904, end: 20250918
  4. VINCRISTINE [Concomitant]
     Active Substance: VINCRISTINE
     Indication: B-cell type acute leukaemia
     Dosage: 1.7 MG, OTHER
     Route: 042
     Dates: start: 20250918, end: 20250925
  5. METHOTREXATE [Concomitant]
     Active Substance: METHOTREXATE
     Indication: B-cell type acute leukaemia
     Dosage: 15 MG, OTHER
     Route: 037
     Dates: start: 20250918, end: 20250925

REACTIONS (4)
  - Venoocclusive liver disease [Recovering/Resolving]
  - Pancreatitis acute [Recovering/Resolving]
  - Febrile neutropenia [Recovering/Resolving]
  - Bacillus bacteraemia [Recovering/Resolving]

NARRATIVE: CASE EVENT DATE: 20250925
